FAERS Safety Report 4998474-0 (Version None)
Quarter: 2006Q2

REPORT INFORMATION
  Report Type: 
  Country: None (occurrence: None)
  Receive Date: 20060508
  Receipt Date: 20060425
  Transmission Date: 20061013
  Serious: Yes (Other)
  Sender: FDA-Public Use
  Company Number: 2006056342

PATIENT
  Age: 48 Year
  Sex: Female
  Weight: 60 kg

DRUGS (1)
  1. TOLTERODINE TARTRATE [Suspect]
     Indication: MICTURITION URGENCY
     Dosage: 3 MG (2 IN 1 D) ORAL
     Route: 048
     Dates: start: 20051201, end: 20060301

REACTIONS (2)
  - CONDITION AGGRAVATED [None]
  - HYPERMETROPIA [None]
